FAERS Safety Report 20733976 (Version 2)
Quarter: 2022Q2

REPORT INFORMATION
  Report Type: Spontaneous
  Country: CN (occurrence: None)
  Receive Date: 20220421
  Receipt Date: 20220526
  Transmission Date: 20220721
  Serious: Yes (Other)
  Sender: FDA-Public Use
  Company Number: CN-ROCHE-3078900

PATIENT
  Age: 69 Year
  Sex: Female

DRUGS (13)
  1. GAZYVA [Suspect]
     Active Substance: OBINUTUZUMAB
     Indication: Diffuse large B-cell lymphoma
     Dosage: D1,D8,D15?SEVENTH CYCLE
     Route: 065
     Dates: start: 20220222
  2. MABTHERA [Suspect]
     Active Substance: RITUXIMAB
     Indication: Diffuse large B-cell lymphoma
     Route: 065
     Dates: start: 20210810
  3. MABTHERA [Suspect]
     Active Substance: RITUXIMAB
     Route: 065
     Dates: start: 20211130
  4. SINTILIMAB [Concomitant]
     Active Substance: SINTILIMAB
     Indication: Diffuse large B-cell lymphoma
     Dates: start: 20210810
  5. METHOTREXATE [Concomitant]
     Active Substance: METHOTREXATE
     Indication: Diffuse large B-cell lymphoma
     Dosage: D2
     Dates: start: 20210810
  6. TEMOZOLOMIDE [Concomitant]
     Active Substance: TEMOZOLOMIDE
     Indication: Diffuse large B-cell lymphoma
     Dosage: 0.3D D2, 0.2G D3-6
     Dates: start: 20210810
  7. DOXORUBICIN HYDROCHLORIDE [Concomitant]
     Active Substance: DOXORUBICIN HYDROCHLORIDE
     Indication: Diffuse large B-cell lymphoma
     Dosage: D8
  8. DOXORUBICIN HYDROCHLORIDE [Concomitant]
     Active Substance: DOXORUBICIN HYDROCHLORIDE
     Dosage: D3
     Dates: start: 20210913
  9. METHYLPREDNISOLONE [Concomitant]
     Active Substance: METHYLPREDNISOLONE
     Indication: Diffuse large B-cell lymphoma
     Dosage: D3-D7
     Dates: start: 20210913
  10. GEMCITABINE [Concomitant]
     Active Substance: GEMCITABINE
     Indication: Diffuse large B-cell lymphoma
     Dosage: D3, D2
     Dates: start: 20211130
  11. OXALIPLATIN [Concomitant]
     Active Substance: OXALIPLATIN
     Indication: Diffuse large B-cell lymphoma
     Dosage: D3, D2
     Dates: start: 20211130
  12. IBRUTINIB [Concomitant]
     Active Substance: IBRUTINIB
     Indication: Diffuse large B-cell lymphoma
     Dates: start: 20220222
  13. POMALIDOMIDE [Concomitant]
     Active Substance: POMALIDOMIDE
     Indication: Diffuse large B-cell lymphoma
     Dosage: D1-D14
     Dates: start: 20220222

REACTIONS (5)
  - Myelosuppression [Unknown]
  - Vomiting [Unknown]
  - Diarrhoea [Unknown]
  - Agranulocytosis [Unknown]
  - Off label use [Unknown]
